FAERS Safety Report 13205635 (Version 2)
Quarter: 2017Q2

REPORT INFORMATION
  Report Type: Spontaneous
  Country: IT (occurrence: IT)
  Receive Date: 20170209
  Receipt Date: 20170425
  Transmission Date: 20170830
  Serious: Yes (Other)
  Sender: FDA-Public Use
  Company Number: IT-PFIZER INC-2017052634

PATIENT
  Sex: Male
  Weight: 1.9 kg

DRUGS (2)
  1. METHOTREXATE. [Suspect]
     Active Substance: METHOTREXATE
     Indication: SELECTIVE ABORTION
     Dosage: 15 MG, UNK
     Route: 064
  2. KCL [Concomitant]
     Active Substance: POTASSIUM CHLORIDE
     Indication: SELECTIVE ABORTION
     Dosage: 2 ML, UNK
     Route: 064

REACTIONS (3)
  - Craniofacial dysostosis [Unknown]
  - Maternal exposure during pregnancy [Unknown]
  - Product use in unapproved indication [Unknown]
